FAERS Safety Report 7373376-3 (Version None)
Quarter: 2011Q1

REPORT INFORMATION
  Report Type: 
  Country: None (occurrence: None)
  Receive Date: 20110324
  Receipt Date: 20110315
  Transmission Date: 20110831
  Serious: Yes (Hospitalization)
  Sender: FDA-Public Use
  Company Number: GB-BAYER-2011-011743

PATIENT
  Age: 39 Year
  Sex: Female
  Weight: 65 kg

DRUGS (3)
  1. GLUCOBAY [Suspect]
     Indication: INSULIN RESISTANCE
     Dosage: DAILY DOSE 50 MG
     Route: 048
     Dates: start: 20100920
  2. FLUOXETINE [Concomitant]
     Indication: DEPRESSION
     Dosage: DAILY DOSE 20 MG
     Route: 048
  3. CLIMAVAL [Concomitant]
     Indication: PREMENSTRUAL SYNDROME
     Dosage: DAILY DOSE 1 MG
     Route: 048

REACTIONS (1)
  - PANCREATITIS [None]
